FAERS Safety Report 5676523-4 (Version None)
Quarter: 2008Q1

REPORT INFORMATION
  Report Type: 
  Country: None (occurrence: None)
  Receive Date: 20080324
  Receipt Date: 20080311
  Transmission Date: 20080703
  Serious: Yes (Hospitalization)
  Sender: FDA-Public Use
  Company Number: GB-RANBAXY-2008RR-13627

PATIENT

DRUGS (1)
  1. ACETAMINOPHEN [Suspect]
     Indication: OVERDOSE
     Dosage: 50 G, UNK

REACTIONS (3)
  - HEPATIC FAILURE [None]
  - OVERDOSE [None]
  - PULMONARY OEDEMA [None]
